FAERS Safety Report 6168133-X (Version None)
Quarter: 2009Q2

REPORT INFORMATION
  Report Type: 
  Country: None (occurrence: None)
  Receive Date: 20090427
  Receipt Date: 20090421
  Transmission Date: 20091009
  Serious: Yes (Other)
  Sender: FDA-Public Use
  Company Number: CA-ASTRAZENECA-2009UW09819

PATIENT
  Age: 68 Year
  Sex: Male

DRUGS (4)
  1. ZESTRIL [Suspect]
     Route: 048
     Dates: start: 20090121, end: 20090416
  2. ASAPHEN EC [Concomitant]
     Dates: start: 20090101
  3. LIPITOR [Concomitant]
     Dates: start: 20051001
  4. COREG [Concomitant]
     Dates: start: 20031001

REACTIONS (1)
  - BREAST MASS [None]
